FAERS Safety Report 23883124 (Version 2)
Quarter: 2024Q2

REPORT INFORMATION
  Report Type: Spontaneous
  Country: FR (occurrence: FR)
  Receive Date: 20240522
  Receipt Date: 20240624
  Transmission Date: 20240715
  Serious: Yes (Hospitalization, Other)
  Sender: FDA-Public Use
  Company Number: None

PATIENT

DRUGS (2)
  1. UNSPECIFIED INGREDIENT [Suspect]
     Active Substance: UNSPECIFIED INGREDIENT
     Indication: Product used for unknown indication
  2. ALCOHOL [Suspect]
     Active Substance: ALCOHOL
     Indication: Product used for unknown indication
     Dosage: 6 FRENCH UNITS OF ALCOHOL A DAY
     Route: 048
     Dates: start: 2011

REACTIONS (6)
  - Dyspnoea [Unknown]
  - Hypercapnia [Recovered/Resolved]
  - Substance abuse [Not Recovered/Not Resolved]
  - Hepatic cirrhosis [Unknown]
  - Hypoventilation [Unknown]
  - Confusional state [Recovered/Resolved]

NARRATIVE: CASE EVENT DATE: 20230106
